FAERS Safety Report 7337425-0 (Version None)
Quarter: 2011Q1

REPORT INFORMATION
  Report Type: 
  Country: None (occurrence: None)
  Receive Date: 20110308
  Receipt Date: 20110221
  Transmission Date: 20110831
  Serious: Yes (Hospitalization)
  Sender: FDA-Public Use
  Company Number: US-BAYER-201029620NA

PATIENT
  Sex: Female
  Weight: 95.238 kg

DRUGS (20)
  1. RENAGEL [Concomitant]
     Dosage: 800 MG, TID
  2. CELLCEPT [Concomitant]
     Dosage: 500 MG,
     Dates: start: 20050101
  3. IMITREX [Concomitant]
     Dosage: UNK
     Dates: start: 20050101
  4. LASIX [Concomitant]
     Dosage: DAILY DOSE 20 MG
     Dates: start: 20050101
  5. CIPRO [Concomitant]
     Dosage: UNK
     Dates: start: 20050101
  6. PREDNISONE [Concomitant]
     Dosage: UNK
     Dates: start: 20050101
  7. PREDNISONE [Concomitant]
     Dosage: 50 MG, FOR 3 DAYS
  8. VITAFOL [FOLIC ACID] [Concomitant]
     Dosage: UNK
     Dates: start: 20040101
  9. CELLCEPT [Concomitant]
     Dosage: 1000 MG, BID, DALY
  10. UNCODEABLE ^UNCLASSIFIABLE^ [Concomitant]
     Dosage: UNK
     Dates: start: 20050101
  11. BACTRIM [Concomitant]
  12. PREVACID [Concomitant]
     Dosage: 30 MG, BID
  13. PLAQUENIL [Concomitant]
     Dosage: 600 MG, DAILY
  14. PROTONIX [Concomitant]
     Dosage: UNK
     Dates: start: 20050101
  15. CEFTIN [Concomitant]
     Dosage: UNK
     Dates: start: 20050624
  16. POTASSIUM [Concomitant]
     Dosage: UNK
     Dates: start: 20050101
  17. ALBUTEROL INHALER [Concomitant]
  18. YASMIN [Suspect]
     Indication: PRODUCT USED FOR UNKNOWN INDICATION
     Route: 048
     Dates: start: 20041001, end: 20050501
  19. RENAGEL [Concomitant]
     Dosage: UNK
     Dates: start: 20050101
  20. LASIX [Concomitant]
     Dosage: 80 MG, BID FOR 3 DAYS

REACTIONS (3)
  - DEEP VEIN THROMBOSIS [None]
  - PAIN IN EXTREMITY [None]
  - OEDEMA PERIPHERAL [None]
